FAERS Safety Report 9694880 (Version 1)
Quarter: 2013Q4

REPORT INFORMATION
  Report Type: Spontaneous
  Country: US (occurrence: US)
  Receive Date: 20131119
  Receipt Date: 20131119
  Transmission Date: 20140711
  Serious: No
  Sender: FDA-Public Use
  Company Number: US-PFIZER INC-2013328536

PATIENT
  Age: 47 Year
  Sex: Female
  Weight: 81.63 kg

DRUGS (3)
  1. NEURONTIN [Suspect]
     Indication: OCCIPITAL NEURALGIA
     Dosage: UNK
     Dates: start: 2004
  2. NEURONTIN [Suspect]
     Dosage: 300 MG, 3X/DAY
  3. GABAPENTIN [Suspect]
     Indication: OCCIPITAL NEURALGIA
     Dosage: UNK

REACTIONS (2)
  - Off label use [Unknown]
  - Drug ineffective for unapproved indication [Unknown]
